FAERS Safety Report 5012818-5 (Version None)
Quarter: 2006Q2

REPORT INFORMATION
  Report Type: 
  Country: None (occurrence: None)
  Receive Date: 20060530
  Receipt Date: 20060329
  Transmission Date: 20061013
  Serious: No
  Sender: FDA-Public Use
  Company Number: US-BRISTOL-MYERS SQUIBB COMPANY-13330600

PATIENT
  Age: 74 Year
  Sex: Male
  Weight: 76 kg

DRUGS (8)
  1. ERBITUX [Suspect]
     Indication: LARYNGEAL CANCER
     Route: 042
     Dates: start: 20060329, end: 20060329
  2. ERBITUX [Suspect]
     Indication: PHARYNGEAL CANCER STAGE UNSPECIFIED
     Route: 042
     Dates: start: 20060329, end: 20060329
  3. DIPHENHYDRAMINE HCL [Concomitant]
     Route: 042
  4. LISINOPRIL [Concomitant]
  5. REGLAN [Concomitant]
  6. ISORDIL [Concomitant]
  7. LEVOTHYROXINE SODIUM [Concomitant]
  8. DURAGESIC-100 [Concomitant]

REACTIONS (1)
  - INFUSION SITE REACTION [None]
